FAERS Safety Report 9362997 (Version 2)
Quarter: 2014Q1

REPORT INFORMATION
  Report Type: Spontaneous
  Country: US (occurrence: US)
  Receive Date: 20130624
  Receipt Date: 20140204
  Transmission Date: 20141002
  Serious: No
  Sender: FDA-Public Use
  Company Number: US-ASTRAZENECA-2013SE27482

PATIENT
  Age: 73 Year
  Sex: Female

DRUGS (6)
  1. NEXIUM [Suspect]
     Indication: GASTROOESOPHAGEAL REFLUX DISEASE
     Route: 048
     Dates: start: 20071106
  2. HYDROCODONE/APAP [Concomitant]
     Dates: start: 20060219
  3. PREDNISONE [Concomitant]
     Dates: start: 20060624
  4. ALPRAZOLAM [Concomitant]
     Dates: start: 20060625
  5. CEPHALEXIN [Concomitant]
     Dates: start: 20061108
  6. LEVAQUIN [Concomitant]
     Dates: start: 20080328

REACTIONS (4)
  - Osteoporosis [Unknown]
  - Spinal compression fracture [Unknown]
  - Bone disorder [Unknown]
  - Senile osteoporosis [Unknown]
